FAERS Safety Report 5955814-3 (Version None)
Quarter: 2008Q4

REPORT INFORMATION
  Report Type: 
  Country: None (occurrence: None)
  Receive Date: 20081117
  Receipt Date: 20081106
  Transmission Date: 20090506
  Serious: Yes (Other)
  Sender: FDA-Public Use
  Company Number: US-PFIZER INC-2008094070

PATIENT
  Sex: Female

DRUGS (4)
  1. DILANTIN [Suspect]
     Indication: CONVULSION
     Dosage: DAILY DOSE:360MG
  2. PRIMIDONE [Concomitant]
  3. MYSOLINE [Concomitant]
  4. ALBUTEROL [Concomitant]

REACTIONS (1)
  - CONVULSION [None]
